FAERS Safety Report 21751737 (Version 1)
Quarter: 2022Q4

REPORT INFORMATION
  Report Type: Other
  Country: CA (occurrence: CA)
  Receive Date: 20221220
  Receipt Date: 20221220
  Transmission Date: 20230113
  Serious: Yes (Other)
  Sender: FDA-Public Use
  Company Number: CA-APOTEX-2022AP016889

PATIENT
  Age: 81 Year
  Sex: Female

DRUGS (1)
  1. ZOLEDRONIC ACID [Suspect]
     Active Substance: ZOLEDRONIC ACID
     Indication: Hormone receptor negative HER2 positive breast cancer
     Dosage: UNK
     Route: 065

REACTIONS (2)
  - Hormone receptor negative HER2 positive breast cancer [Unknown]
  - Product use in unapproved indication [Unknown]
